FAERS Safety Report 18390986 (Version 6)
Quarter: 2024Q3

REPORT INFORMATION
  Report Type: Report from Study
  Country: BE (occurrence: BE)
  Receive Date: 20201015
  Receipt Date: 20240923
  Transmission Date: 20241017
  Serious: No
  Sender: ROCHE
  Company Number: BE-ROCHE-2695633

PATIENT
  Age: 35 Year
  Sex: Female
  Weight: 74.0 kg

DRUGS (29)
  1. OCRELIZUMAB [Suspect]
     Active Substance: OCRELIZUMAB
     Indication: Progressive relapsing multiple sclerosis
     Dosage: 300 MG/250 ML (TOTAL VOLUME ADMINISTERED: 260 ML)
     Route: 042
     Dates: start: 20200818, end: 20200818
  2. OCRELIZUMAB [Suspect]
     Active Substance: OCRELIZUMAB
     Dosage: 300 MG/250 ML (TOTAL VOLUME ADMINISTERED: 260 ML)
     Route: 042
     Dates: start: 20200901, end: 20200901
  3. OCRELIZUMAB [Suspect]
     Active Substance: OCRELIZUMAB
     Dosage: 300 MG/250 ML (TOTAL VOLUME ADMINISTERED: 260ML)
     Route: 042
     Dates: start: 20210216, end: 20210216
  4. OCRELIZUMAB [Suspect]
     Active Substance: OCRELIZUMAB
     Dosage: 300 MG/250 ML (TOTAL VOLUME ADMINISTERED: 260ML)
     Route: 042
     Dates: start: 20220204, end: 20220204
  5. OCRELIZUMAB [Suspect]
     Active Substance: OCRELIZUMAB
     Dosage: 300 MG/250 ML (TOTAL VOLUME ADMINISTERED: 260ML)
     Route: 042
     Dates: start: 20200818, end: 20200818
  6. OCRELIZUMAB [Suspect]
     Active Substance: OCRELIZUMAB
     Dosage: 300 MG/250 ML (TOTAL VOLUME ADMINISTERED: 260ML)
     Route: 042
     Dates: start: 20240829, end: 20240829
  7. OCRELIZUMAB [Suspect]
     Active Substance: OCRELIZUMAB
     Dosage: 300 MG/250 ML (TOTAL VOLUME ADMINISTERED: 260ML)
     Route: 042
     Dates: start: 20240829, end: 20240829
  8. OCRELIZUMAB [Suspect]
     Active Substance: OCRELIZUMAB
     Dosage: 300 MG/250 ML (TOTAL VOLUME ADMINISTERED: 260ML)
     Route: 042
     Dates: start: 20230216, end: 20230216
  9. OCRELIZUMAB [Suspect]
     Active Substance: OCRELIZUMAB
     Dosage: 300 MG/250 ML (TOTAL VOLUME ADMINISTERED: 260ML)
     Route: 042
     Dates: start: 20230216, end: 20230216
  10. OCRELIZUMAB [Suspect]
     Active Substance: OCRELIZUMAB
     Dosage: 300 MG/250 ML (TOTAL VOLUME ADMINISTERED: 260ML)
     Route: 042
     Dates: start: 20240222, end: 20240222
  11. OCRELIZUMAB [Suspect]
     Active Substance: OCRELIZUMAB
     Dosage: 300 MG/250 ML (TOTAL VOLUME ADMINISTERED: 260ML)
     Route: 042
     Dates: start: 20220816, end: 20220816
  12. OCRELIZUMAB [Suspect]
     Active Substance: OCRELIZUMAB
     Dosage: 300 MG/250 ML (TOTAL VOLUME ADMINISTERED: 260ML)
     Route: 042
     Dates: start: 20220816, end: 20220816
  13. OCRELIZUMAB [Suspect]
     Active Substance: OCRELIZUMAB
     Dosage: 300 MG/250 ML (TOTAL VOLUME ADMINISTERED: 260ML)
     Route: 042
     Dates: start: 20210216, end: 20210216
  14. OCRELIZUMAB [Suspect]
     Active Substance: OCRELIZUMAB
     Dosage: 300 MG/250 ML (TOTAL VOLUME ADMINISTERED: 260ML)
     Route: 042
     Dates: start: 20230822, end: 20230822
  15. OCRELIZUMAB [Suspect]
     Active Substance: OCRELIZUMAB
     Dosage: 300 MG/250 ML (TOTAL VOLUME ADMINISTERED: 260ML)
     Route: 042
     Dates: start: 20210804, end: 20210804
  16. DULOXETINE [Concomitant]
     Active Substance: DULOXETINE
     Indication: Multiple sclerosis
     Route: 048
     Dates: start: 20180309, end: 20210119
  17. AMANTADINE [Concomitant]
     Active Substance: AMANTADINE
     Route: 048
     Dates: start: 20200103, end: 202101
  18. SOLU-MEDROL [Concomitant]
     Active Substance: METHYLPREDNISOLONE SODIUM SUCCINATE
     Dosage: FREQUENCY TEXT:ONCE BEFORE INFUSION
     Route: 042
     Dates: start: 20200818, end: 20200818
  19. SOLU-MEDROL [Concomitant]
     Active Substance: METHYLPREDNISOLONE SODIUM SUCCINATE
     Dosage: FREQUENCY TEXT:ONCE BEFORE INFUSION
     Route: 042
     Dates: start: 20200901, end: 20200901
  20. SOLU-MEDROL [Concomitant]
     Active Substance: METHYLPREDNISOLONE SODIUM SUCCINATE
     Dosage: FREQUENCY TEXT:ONCE BEFORE INFUSION
     Route: 042
     Dates: start: 20210216, end: 20210216
  21. LEVOCETIRIZINE [Concomitant]
     Active Substance: LEVOCETIRIZINE
     Dosage: FREQUENCY TEXT:ONCE BEFORE INFUSION
     Route: 048
     Dates: start: 20200818, end: 20200818
  22. LEVOCETIRIZINE [Concomitant]
     Active Substance: LEVOCETIRIZINE
     Dosage: FREQUENCY TEXT:ONCE BEFORE INFUSION
     Route: 048
     Dates: start: 20200901, end: 20200901
  23. LEVOCETIRIZINE [Concomitant]
     Active Substance: LEVOCETIRIZINE
     Dosage: FREQUENCY TEXT:ONCE BEFORE INFUSION
     Route: 048
     Dates: start: 20210216, end: 20210216
  24. ACETAMINOPHEN [Concomitant]
     Active Substance: ACETAMINOPHEN
     Dosage: FREQUENCY TEXT:ONCE BEFORE INFUSION
     Route: 042
     Dates: start: 20200818, end: 20200818
  25. ACETAMINOPHEN [Concomitant]
     Active Substance: ACETAMINOPHEN
     Dosage: FREQUENCY TEXT:ONCE BEFORE INFUSION
     Route: 042
     Dates: start: 20200901, end: 20200901
  26. ACETAMINOPHEN [Concomitant]
     Active Substance: ACETAMINOPHEN
     Dosage: FREQUENCY TEXT:ONCE BEFORE INFUSION
     Route: 042
     Dates: start: 20210216, end: 20210216
  27. LEVOCETIRIZINE [Concomitant]
     Active Substance: LEVOCETIRIZINE
     Dosage: ONCE BEFORE INFUSION
     Route: 048
     Dates: start: 20200818, end: 20200818
  28. LEVOCETIRIZINE [Concomitant]
     Active Substance: LEVOCETIRIZINE
     Dosage: ONCE BEFORE INFUSION
     Route: 048
     Dates: start: 20200901, end: 20200901
  29. METHYLPHENIDATE HYDROCHLORIDE [Concomitant]
     Active Substance: METHYLPHENIDATE HYDROCHLORIDE
     Dosage: FREQUENCY TEXT:PRN
     Route: 048
     Dates: start: 20200103

REACTIONS (4)
  - Oral herpes [Recovered/Resolved]
  - Musculoskeletal pain [Recovered/Resolved]
  - Pruritus [Recovered/Resolved]
  - Alopecia [Recovered/Resolved]

NARRATIVE: CASE EVENT DATE: 20200901
